FAERS Safety Report 6942045-3 (Version None)
Quarter: 2010Q3

REPORT INFORMATION
  Report Type: 
  Country: None (occurrence: None)
  Receive Date: 20100826
  Receipt Date: 20100814
  Transmission Date: 20110219
  Serious: Yes (Death, Hospitalization)
  Sender: FDA-Public Use
  Company Number: IN-PFIZER INC-2007065505

PATIENT
  Age: 24 Year
  Sex: Male
  Weight: 40 kg

DRUGS (1)
  1. SUNITINIB MALATE [Suspect]
     Indication: GASTROINTESTINAL STROMAL TUMOUR
     Dosage: 50 MG, 1X/DAY
     Route: 048
     Dates: start: 20070611, end: 20070709

REACTIONS (4)
  - CONVULSION [None]
  - DEEP VEIN THROMBOSIS [None]
  - HAEMORRHAGE INTRACRANIAL [None]
  - HEMIPARESIS [None]
